FAERS Safety Report 14293706 (Version 3)
Quarter: 2018Q1

REPORT INFORMATION
  Report Type: Spontaneous
  Country: US (occurrence: US)
  Receive Date: 20171216
  Receipt Date: 20180122
  Transmission Date: 20180509
  Serious: Yes (Hospitalization, Other)
  Sender: FDA-Public Use
  Company Number: US-009507513-1712USA004608

PATIENT
  Age: 51 Year
  Sex: Male

DRUGS (2)
  1. TEMODAR [Suspect]
     Active Substance: TEMOZOLOMIDE
     Dosage: SIX CYCLES
     Route: 048
  2. TEMODAR [Suspect]
     Active Substance: TEMOZOLOMIDE
     Indication: GLIOBLASTOMA MULTIFORME
     Dosage: INITIALLY WITH CONCOMITANT RADIOTHERAPY
     Route: 048

REACTIONS (3)
  - CD4 lymphocytes decreased [Unknown]
  - Pneumonia blastomyces [Unknown]
  - Acute pulmonary histoplasmosis [Unknown]
